FAERS Safety Report 4849798-9 (Version None)
Quarter: 2005Q4

REPORT INFORMATION
  Report Type: 
  Country: None (occurrence: None)
  Receive Date: 20051115
  Receipt Date: 20050812
  Transmission Date: 20060501
  Serious: Yes (Hospitalization)
  Sender: FDA-Public Use
  Company Number: 2005-08-0004

PATIENT
  Sex: Female

DRUGS (1)
  1. OVAR (BECLOMETASONE DIPROPIONATE) (AEROSOL FOR INHALATION) [Suspect]
     Dosage: INHALATION
     Route: 055

REACTIONS (1)
  - LUNG INFECTION [None]
